FAERS Safety Report 16631461 (Version 2)
Quarter: 2019Q4

REPORT INFORMATION
  Report Type: Spontaneous
  Country: US (occurrence: US)
  Receive Date: 20190725
  Receipt Date: 20191014
  Transmission Date: 20200122
  Serious: No
  Sender: FDA-Public Use
  Company Number: US-JNJFOC-20190733713

PATIENT
  Sex: Male

DRUGS (2)
  1. ASPRIN [Concomitant]
     Active Substance: ASPIRIN
  2. ZYTIGA [Suspect]
     Active Substance: ABIRATERONE ACETATE
     Indication: PRODUCT USED FOR UNKNOWN INDICATION
     Route: 048
     Dates: start: 20190629

REACTIONS (3)
  - Pain [Recovering/Resolving]
  - Fatigue [Recovering/Resolving]
  - Frequent bowel movements [Unknown]
